FAERS Safety Report 6113874-3 (Version None)
Quarter: 2009Q1

REPORT INFORMATION
  Report Type: 
  Country: None (occurrence: None)
  Receive Date: 20090312
  Receipt Date: 20080613
  Transmission Date: 20090719
  Serious: No
  Sender: FDA-Public Use
  Company Number: US-ABBOTT-08P-163-0457273-00

PATIENT
  Sex: Female

DRUGS (2)
  1. LUPRON DEPOT [Suspect]
     Indication: ADNEXA UTERI PAIN
     Route: 030
     Dates: start: 20080530
  2. LUPRON DEPOT [Suspect]
     Indication: VAGINAL HAEMORRHAGE

REACTIONS (2)
  - ADNEXA UTERI PAIN [None]
  - MIGRAINE [None]
